FAERS Safety Report 13954449 (Version 1)
Quarter: 2017Q3

REPORT INFORMATION
  Report Type: Spontaneous
  Country: US (occurrence: US)
  Receive Date: 20170911
  Receipt Date: 20170911
  Transmission Date: 20171128
  Serious: No
  Sender: FDA-Public Use
  Company Number: US-VERTEX PHARMACEUTICALS-2017-004860

PATIENT
  Age: 19 Year
  Sex: Male
  Weight: 84 kg

DRUGS (6)
  1. ADEKS [Concomitant]
     Dosage: 2 TAB, QD
     Route: 048
  2. VITAMIN D [Concomitant]
     Active Substance: CHOLECALCIFEROL
     Dosage: 2000 IU, QD
     Route: 048
  3. ALBUTEROL. [Concomitant]
     Active Substance: ALBUTEROL
     Dosage: INHALE VIA NEBULISER, BID
     Route: 055
  4. RANITIDINE. [Concomitant]
     Active Substance: RANITIDINE
     Dosage: 1 TAB, BID
     Route: 048
  5. KALYDECO [Suspect]
     Active Substance: IVACAFTOR
     Indication: CYSTIC FIBROSIS
     Dosage: 150 MG, BID
     Route: 048
  6. CREON [Concomitant]
     Active Substance: PANCRELIPASE AMYLASE\PANCRELIPASE LIPASE\PANCRELIPASE PROTEASE
     Dosage: 5 CAPS WITH MEALS AND SNACKS
     Route: 048

REACTIONS (1)
  - Sweat gland disorder [Not Recovered/Not Resolved]

NARRATIVE: CASE EVENT DATE: 201707
